FAERS Safety Report 4506027-3 (Version None)
Quarter: 2004Q4

REPORT INFORMATION
  Report Type: 
  Country: None (occurrence: None)
  Receive Date: 20041025
  Receipt Date: 20031124
  Transmission Date: 20050328
  Serious: Yes (Other)
  Sender: FDA-Public Use
  Company Number: US-JNJFOC-20030705679

PATIENT
  Age: 38 Year
  Sex: Female
  Weight: 54.8852 kg

DRUGS (7)
  1. REMICADE [Suspect]
     Indication: CROHN'S DISEASE
     Dosage: 1 IN 1 TOTAL, INTRAVENOUS; SEE IMAGE
     Route: 042
     Dates: start: 19991201
  2. REMICADE [Suspect]
     Indication: CROHN'S DISEASE
     Dosage: 1 IN 1 TOTAL, INTRAVENOUS; SEE IMAGE
     Route: 042
     Dates: start: 20000101
  3. REMICADE [Suspect]
     Indication: CROHN'S DISEASE
     Dosage: 1 IN 1 TOTAL, INTRAVENOUS; SEE IMAGE
     Route: 042
     Dates: start: 20000301
  4. REMICADE [Suspect]
     Indication: CROHN'S DISEASE
     Dosage: 1 IN 1 TOTAL, INTRAVENOUS; SEE IMAGE
     Route: 042
     Dates: start: 20030624
  5. REMICADE [Suspect]
     Indication: CROHN'S DISEASE
     Dosage: 1 IN 1 TOTAL, INTRAVENOUS; SEE IMAGE
     Route: 042
     Dates: start: 20030708
  6. MERCAPTOPURINE [Concomitant]
  7. MESALAMINE [Concomitant]

REACTIONS (13)
  - ABDOMINAL PAIN [None]
  - CHEST DISCOMFORT [None]
  - CHILLS [None]
  - COLITIS [None]
  - DIZZINESS [None]
  - DYSPNOEA [None]
  - FLUSHING [None]
  - INFUSION RELATED REACTION [None]
  - NAUSEA [None]
  - PALLOR [None]
  - PRURITUS [None]
  - THERAPEUTIC RESPONSE DECREASED [None]
  - WHEEZING [None]
